FAERS Safety Report 8914285 (Version 1)
Quarter: 2012Q4

REPORT INFORMATION
  Report Type: Report from Study
  Country: CA (occurrence: CA)
  Receive Date: 20121119
  Receipt Date: 20121119
  Transmission Date: 20130627
  Serious: Yes (Congenital Anomaly)
  Sender: FDA-Public Use
  Company Number: CA-JNJFOC-20121105586

PATIENT
  Sex: Female

DRUGS (1)
  1. REMICADE [Suspect]
     Indication: EXPOSURE VIA FATHER
     Route: 064
     Dates: start: 2009

REACTIONS (1)
  - Polydactyly [Unknown]
